FAERS Safety Report 6844838-X (Version None)
Quarter: 2010Q3

REPORT INFORMATION
  Report Type: 
  Country: None (occurrence: None)
  Receive Date: 20100713
  Receipt Date: 20100210
  Transmission Date: 20110219
  Serious: Yes (Hospitalization)
  Sender: FDA-Public Use
  Company Number: 1-18184685

PATIENT
  Age: 65 Year
  Sex: Female
  Weight: 45.3597 kg

DRUGS (18)
  1. QUININE SULFATE [Suspect]
     Indication: MUSCLE SPASMS
     Dosage: ORAL
     Route: 048
     Dates: start: 20040225, end: 20050314
  2. ABILIFY [Concomitant]
  3. ALPRAZOLAM [Concomitant]
  4. AVAPRO [Concomitant]
  5. CITRACAL [Concomitant]
  6. FORTEO [Concomitant]
  7. MAGNESIUM GLUCONATE [Concomitant]
  8. REMERON [Concomitant]
  9. OXYCODONE [Concomitant]
  10. PRILOSEC [Concomitant]
  11. TICLOPIDINE HCL [Concomitant]
  12. ENALAPRIL MALEATE [Concomitant]
  13. NORVASC [Concomitant]
  14. CELEXA [Concomitant]
  15. TRAZODONE [Concomitant]
  16. AMBIEN [Concomitant]
  17. COUMADIN [Concomitant]
  18. XANAX [Concomitant]

REACTIONS (13)
  - ANAEMIA [None]
  - ANXIETY [None]
  - BLADDER OBSTRUCTION [None]
  - BLOOD PRESSURE INCREASED [None]
  - CHEST PAIN [None]
  - GOUT [None]
  - ILEUS [None]
  - NAUSEA [None]
  - NERVOUSNESS [None]
  - PULMONARY EMBOLISM [None]
  - RENAL FAILURE [None]
  - SMALL INTESTINAL OBSTRUCTION [None]
  - URINARY TRACT DISORDER [None]
